FAERS Safety Report 17505352 (Version 1)
Quarter: 2020Q1

REPORT INFORMATION
  Report Type: Spontaneous
  Country: DE (occurrence: DE)
  Receive Date: 20200305
  Receipt Date: 20200305
  Transmission Date: 20200409
  Serious: Yes (Hospitalization)
  Sender: FDA-Public Use
  Company Number: DE-MYLANLABS-2020M1023736

PATIENT
  Age: 68 Year
  Sex: Female
  Weight: 104 kg

DRUGS (6)
  1. MABTHERA [Suspect]
     Active Substance: RITUXIMAB
     Indication: DIFFUSE LARGE B-CELL LYMPHOMA
     Dosage: 1ST LINE THERAPY, ACCORDING TO R-CHOP REGIME, 6 CYCLE
     Route: 065
     Dates: start: 20190321, end: 20190724
  2. MABTHERA [Suspect]
     Active Substance: RITUXIMAB
     Dosage: 1ST LINE THERAPY, ACCORDING TO R-MTX REGIME, 2 CYCLE
     Route: 065
     Dates: start: 20190502, end: 20190704
  3. DHAP [Suspect]
     Active Substance: CISPLATIN\CYTARABINE\DEXAMETHASONE
     Indication: DIFFUSE LARGE B-CELL LYMPHOMA
     Dosage: 2ND LINE THERAPY, ACCORDING TO R-DHAP REGIME, 1 CYCLE
     Route: 065
     Dates: start: 20191003, end: 20191005
  4. METHOTREXATE. [Suspect]
     Active Substance: METHOTREXATE
     Indication: DIFFUSE LARGE B-CELL LYMPHOMA
     Dosage: 1ST LINE THERAPY, ACCORDING TO R-MTX REGIME, 2 CYCLE
     Route: 065
     Dates: start: 20190502, end: 20190704
  5. MABTHERA [Suspect]
     Active Substance: RITUXIMAB
     Dosage: 2ND LINE THERAPY, ACCORDING TO R-DHAP REGIME, 1 CYCLE
     Route: 065
     Dates: start: 20191003, end: 20191005
  6. CHOP [Suspect]
     Active Substance: CYCLOPHOSPHAMIDE\DOXORUBICIN\PREDNISONE\VINCRISTINE
     Indication: DIFFUSE LARGE B-CELL LYMPHOMA
     Dosage: 1ST LINE THERAPY, ACCORDING TO R-CHOP REGIME, 6 CYCLE
     Route: 065
     Dates: start: 20190321, end: 20190724

REACTIONS (4)
  - Pneumonia [Unknown]
  - Acute kidney injury [Unknown]
  - Neuropathy peripheral [Unknown]
  - Urosepsis [Unknown]

NARRATIVE: CASE EVENT DATE: 201910
